FAERS Safety Report 7496753-9 (Version None)
Quarter: 2011Q2

REPORT INFORMATION
  Report Type: 
  Country: None (occurrence: None)
  Receive Date: 20110523
  Receipt Date: 20110214
  Transmission Date: 20111010
  Serious: Yes (Other)
  Sender: FDA-Public Use
  Company Number: B0699628A

PATIENT
  Sex: Female

DRUGS (6)
  1. ASPEGIC 325 [Concomitant]
     Route: 065
  2. VESICARE [Concomitant]
     Route: 065
  3. KALETRA [Suspect]
     Route: 048
     Dates: start: 20101129
  4. COMBIVIR [Suspect]
     Route: 048
     Dates: start: 20101129
  5. AMLODIPINE BESYLATE [Concomitant]
     Route: 065
  6. COTAREG [Concomitant]
     Route: 065

REACTIONS (2)
  - PURPURA [None]
  - THROMBOCYTOPENIA [None]
